FAERS Safety Report 8879148 (Version 1)
Quarter: 2012Q4

REPORT INFORMATION
  Report Type: Spontaneous
  Country: US (occurrence: None)
  Receive Date: 20121031
  Receipt Date: 20121031
  Transmission Date: 20130627
  Serious: Yes (Death)
  Sender: FDA-Public Use
  Company Number: None

PATIENT
  Age: 81 Year
  Sex: Male

DRUGS (13)
  1. REVLIMID [Suspect]
     Indication: MULTIPLE MYELOMA
     Dosage: QODx21d/28d orally
     Route: 048
     Dates: start: 201202, end: 201204
  2. DECADRON [Concomitant]
  3. VICODIN [Concomitant]
  4. OXYCODONE [Concomitant]
  5. COZAAR [Concomitant]
  6. ZOCOR [Concomitant]
  7. NORVASC [Concomitant]
  8. TENORMIN [Concomitant]
  9. GLUCOTROL [Concomitant]
  10. TAMSULOSIN [Concomitant]
  11. ALLOPURINOL [Concomitant]
  12. FAMOTIDINE [Concomitant]
  13. PRIMIDONE [Concomitant]

REACTIONS (2)
  - Decreased appetite [None]
  - Confusional state [None]
